FAERS Safety Report 5292894-5 (Version None)
Quarter: 2007Q1

REPORT INFORMATION
  Report Type: 
  Country: None (occurrence: None)
  Receive Date: 20070116
  Receipt Date: 20060703
  Transmission Date: 20070707
  Serious: Yes (Other)
  Sender: FDA-Public Use
  Company Number: HQWYE616729JUL04

PATIENT
  Age: 51 Year
  Sex: Female
  Weight: 65.83 kg

DRUGS (3)
  1. PREMPRO [Suspect]
     Indication: HORMONE REPLACEMENT THERAPY
     Dosage: UNSPECIFIED DOSAGE REGIMEN; ORAL
     Route: 048
     Dates: start: 19970101, end: 19990301
  2. CYCRIN [Suspect]
     Dosage: UNK; ORAL
     Route: 048
     Dates: start: 19940101, end: 19970301
  3. PREMARIN [Suspect]
     Dosage: UNK, ORAL
     Route: 048
     Dates: start: 19940901, end: 19970301

REACTIONS (1)
  - BREAST CANCER [None]
